FAERS Safety Report 12481753 (Version 1)
Quarter: 2016Q2

REPORT INFORMATION
  Report Type: Spontaneous
  Country: RU (occurrence: RU)
  Receive Date: 20160620
  Receipt Date: 20160620
  Transmission Date: 20160815
  Serious: Yes (Hospitalization)
  Sender: FDA-Public Use
  Company Number: PHHY2016RU081284

PATIENT
  Age: 46 Year
  Sex: Female

DRUGS (5)
  1. DOXORUBICIN [Suspect]
     Active Substance: DOXORUBICIN
     Indication: INTRADUCTAL PROLIFERATIVE BREAST LESION
     Dosage: 620 MG, UNK
     Route: 065
     Dates: start: 20121108
  2. PACLITAXEL. [Suspect]
     Active Substance: PACLITAXEL
     Indication: METASTASES TO LIVER
     Route: 065
  3. TRASTUZUMAB [Suspect]
     Active Substance: TRASTUZUMAB
     Indication: INTRADUCTAL PROLIFERATIVE BREAST LESION
     Route: 065
     Dates: start: 20130514, end: 20140109
  4. TRASTUZUMAB [Suspect]
     Active Substance: TRASTUZUMAB
     Dosage: UNK
     Route: 065
     Dates: end: 20140729
  5. DOXORUBICIN [Suspect]
     Active Substance: DOXORUBICIN
     Dosage: 280 MG, UNK
     Route: 065

REACTIONS (4)
  - Hydrothorax [Recovered/Resolved]
  - Pericardial effusion [Recovered/Resolved]
  - Congestive cardiomyopathy [Unknown]
  - Cardiac failure congestive [Unknown]
